FAERS Safety Report 8401950-1 (Version None)
Quarter: 2012Q2

REPORT INFORMATION
  Report Type: 
  Country: None (occurrence: None)
  Receive Date: 20120529
  Receipt Date: 20020205
  Transmission Date: 20120825
  Serious: Yes (Death, Hospitalization, Other)
  Sender: FDA-Public Use
  Company Number: 02100-JPN-02-0001

PATIENT
  Age: 73 Year
  Sex: Male

DRUGS (3)
  1. SIGMART (NICORANDIL) INJECTION [Suspect]
     Indication: ANGINA PECTORIS
     Dosage: 0, IV DRIP
     Route: 041
     Dates: start: 20020108, end: 20020109
  2. PLETAL [Suspect]
     Dosage: 100 MG, QD, ORAL
     Route: 048
     Dates: start: 20020108, end: 20020109
  3. PERSANTIN [Concomitant]

REACTIONS (9)
  - CEREBRAL ISCHAEMIA [None]
  - BLOOD PRESSURE DECREASED [None]
  - CARDIAC FAILURE [None]
  - FLUSHING [None]
  - HAEMODIALYSIS [None]
  - ARRHYTHMIA [None]
  - TACHYCARDIA [None]
  - PALPITATIONS [None]
  - EMBOLISM VENOUS [None]
